FAERS Safety Report 23756092 (Version 1)
Quarter: 2024Q2

REPORT INFORMATION
  Report Type: Spontaneous
  Country: US (occurrence: None)
  Receive Date: 20240418
  Receipt Date: 20240418
  Transmission Date: 20240716
  Serious: Yes (Hospitalization)
  Sender: FDA-Public Use
  Company Number: None

PATIENT
  Age: 70 Year
  Sex: Male
  Weight: 77.5 kg

DRUGS (1)
  1. EDOXABAN [Suspect]
     Active Substance: EDOXABAN
     Indication: Atrial fibrillation
     Dosage: 60MG EVERY DAY PO
     Route: 048
     Dates: start: 20230629, end: 20231019

REACTIONS (7)
  - Anaemia [None]
  - Gastrointestinal haemorrhage [None]
  - Asthenia [None]
  - Dyspnoea [None]
  - Atrial fibrillation [None]
  - Large intestine polyp [None]
  - Chronic gastritis [None]

NARRATIVE: CASE EVENT DATE: 20231016
